FAERS Safety Report 8018711-8 (Version None)
Quarter: 2012Q1

REPORT INFORMATION
  Report Type: 
  Country: None (occurrence: None)
  Receive Date: 20120103
  Receipt Date: 20120103
  Transmission Date: 20120608
  Serious: Yes (Other)
  Sender: FDA-Public Use
  Company Number: None

PATIENT
  Age: 62 Year
  Sex: Female
  Weight: 81.646 kg

DRUGS (1)
  1. PREMARIN [Suspect]
     Indication: VULVOVAGINAL DRYNESS
     Dosage: 625.MG1ANDHALFOZ
     Dates: start: 20100905, end: 20111029

REACTIONS (3)
  - BACK PAIN [None]
  - HAEMORRHAGE [None]
  - MUSCULOSKELETAL PAIN [None]
